FAERS Safety Report 7081291-8 (Version None)
Quarter: 2010Q4

REPORT INFORMATION
  Report Type: 
  Country: None (occurrence: None)
  Receive Date: 20101103
  Receipt Date: 20101025
  Transmission Date: 20110411
  Serious: Yes (Hospitalization, Other)
  Sender: FDA-Public Use
  Company Number: US-JNJFOC-20100708051

PATIENT
  Sex: Female

DRUGS (24)
  1. LEVAQUIN [Suspect]
     Indication: NASOPHARYNGITIS
     Route: 048
  2. LEVAQUIN [Suspect]
     Route: 048
  3. LEVAQUIN [Suspect]
     Indication: SINUSITIS
     Route: 048
  4. LEVAQUIN [Suspect]
     Route: 048
  5. METHYLPREDNISOLONE [Suspect]
     Indication: RHEUMATOID ARTHRITIS
     Route: 065
  6. METHYLPREDNISOLONE [Suspect]
     Route: 065
  7. METHYLPREDNISOLONE [Suspect]
     Route: 065
  8. METHYLPREDNISOLONE [Suspect]
     Route: 065
  9. METHYLPREDNISOLONE [Suspect]
     Route: 065
  10. METHYLPREDNISOLONE [Suspect]
     Indication: OROPHARYNGEAL PAIN
     Route: 065
  11. METHYLPREDNISOLONE [Suspect]
     Route: 065
  12. METHYLPREDNISOLONE [Suspect]
     Route: 065
  13. METHYLPREDNISOLONE [Suspect]
     Route: 065
  14. METHYLPREDNISOLONE [Suspect]
     Route: 065
  15. METHYLPREDNISOLONE [Suspect]
     Indication: SINUS DISORDER
     Route: 065
  16. METHYLPREDNISOLONE [Suspect]
     Route: 065
  17. METHYLPREDNISOLONE [Suspect]
     Route: 065
  18. METHYLPREDNISOLONE [Suspect]
     Route: 065
  19. METHYLPREDNISOLONE [Suspect]
     Route: 065
  20. METHYLPREDNISOLONE [Suspect]
     Indication: COUGH
     Route: 065
  21. METHYLPREDNISOLONE [Suspect]
     Route: 065
  22. METHYLPREDNISOLONE [Suspect]
     Route: 065
  23. METHYLPREDNISOLONE [Suspect]
     Route: 065
  24. METHYLPREDNISOLONE [Suspect]
     Route: 065

REACTIONS (3)
  - EXOSTOSIS [None]
  - MENISCUS LESION [None]
  - TENDON RUPTURE [None]
